FAERS Safety Report 9687560 (Version 2)
Quarter: 2013Q4

REPORT INFORMATION
  Report Type: Report from Study
  Country: US (occurrence: US)
  Receive Date: 20131114
  Receipt Date: 20131115
  Transmission Date: 20140711
  Serious: Yes (Death)
  Sender: FDA-Public Use
  Company Number: US-ROCHE-1303971

PATIENT
  Age: 60 Year
  Sex: Male
  Weight: 100 kg

DRUGS (5)
  1. CELLCEPT [Suspect]
     Indication: RENAL TRANSPLANT
     Route: 048
     Dates: end: 20130407
  2. TACROLIMUS [Suspect]
     Indication: RENAL TRANSPLANT
     Route: 048
     Dates: end: 20130407
  3. PREDNISONE [Suspect]
     Indication: RENAL TRANSPLANT
     Route: 048
     Dates: end: 20130407
  4. VASOPRESSIN [Concomitant]
     Indication: HYPOTENSION
     Route: 042
     Dates: start: 20130404, end: 20130405
  5. NOREPINEPHRINE [Concomitant]
     Indication: HYPOTENSION
     Route: 042
     Dates: start: 20130404, end: 20130405

REACTIONS (1)
  - Ventricular fibrillation [Fatal]
